FAERS Safety Report 5810973-8 (Version None)
Quarter: 2008Q3

REPORT INFORMATION
  Report Type: 
  Country: None (occurrence: None)
  Receive Date: 20080716
  Receipt Date: 20080711
  Transmission Date: 20090109
  Serious: Yes (Death, Hospitalization)
  Sender: FDA-Public Use
  Company Number: PHHY2008CA07037

PATIENT
  Age: 58 Year
  Sex: Male

DRUGS (3)
  1. GLEEVEC [Suspect]
     Indication: CHRONIC MYELOID LEUKAEMIA
     Dosage: 600 MG, QD
     Route: 048
     Dates: start: 20080101
  2. GLEEVEC [Suspect]
     Dosage: 400 MG, QD
  3. HYDROXYUREA [Concomitant]

REACTIONS (6)
  - CARDIAC FAILURE [None]
  - CHRONIC MYELOID LEUKAEMIA [None]
  - DRUG HYPERSENSITIVITY [None]
  - DRUG RESISTANCE [None]
  - INTERSTITIAL LUNG DISEASE [None]
  - LUNG DISORDER [None]
